FAERS Safety Report 4294609-6 (Version None)
Quarter: 2004Q1

REPORT INFORMATION
  Report Type: 
  Country: None (occurrence: None)
  Receive Date: 20040211
  Receipt Date: 20040203
  Transmission Date: 20041129
  Serious: Yes (Death)
  Sender: FDA-Public Use
  Company Number: JP-JNJFOC-20040200932

PATIENT
  Age: 30 Year
  Sex: Male
  Weight: 48.5 kg

DRUGS (1)
  1. REMICADE [Suspect]
     Indication: CROHN'S DISEASE
     Dosage: INTRAVENOUS DRIP
     Route: 041

REACTIONS (8)
  - CARDIO-RESPIRATORY ARREST [None]
  - COMA [None]
  - DYSPHAGIA [None]
  - ENCEPHALOPATHY [None]
  - ILEUS [None]
  - POSTOPERATIVE INFECTION [None]
  - RESPIRATORY DISORDER [None]
  - SPEECH DISORDER [None]
